FAERS Safety Report 4343166-4 (Version None)
Quarter: 2004Q2

REPORT INFORMATION
  Report Type: 
  Country: None (occurrence: None)
  Receive Date: 20040416
  Receipt Date: 20040413
  Transmission Date: 20050107
  Serious: Yes (Death)
  Sender: FDA-Public Use
  Company Number: US-JNJFOC-20040304498

PATIENT
  Age: 67 Year
  Sex: Female

DRUGS (3)
  1. RISPERDAL [Suspect]
     Indication: SCHIZOPHRENIA
     Dosage: 2 MG, 2 IN 1 DAY, ORAL
     Route: 048
     Dates: start: 19971024, end: 20040301
  2. KLONAPIN (CLONAZEPAM) [Concomitant]
  3. COGENTIN [Concomitant]

REACTIONS (1)
  - LUNG NEOPLASM MALIGNANT [None]
